FAERS Safety Report 23901073 (Version 1)
Quarter: 2024Q2

REPORT INFORMATION
  Report Type: Other
  Country: US (occurrence: None)
  Receive Date: 20240526
  Receipt Date: 20240526
  Transmission Date: 20240716
  Serious: No
  Sender: FDA-Public Use
  Company Number: US-ROCHE-3391481

PATIENT
  Age: 62 Year
  Sex: Female

DRUGS (2)
  1. OCREVUS [Suspect]
     Active Substance: OCRELIZUMAB
     Indication: Multiple sclerosis
     Route: 042
     Dates: start: 202206
  2. TEPROTUMUMAB [Concomitant]
     Active Substance: TEPROTUMUMAB
     Indication: Endocrine ophthalmopathy

REACTIONS (2)
  - Endocrine ophthalmopathy [Unknown]
  - Therapeutic response unexpected [Unknown]
